FAERS Safety Report 16538973 (Version 2)
Quarter: 2019Q3

REPORT INFORMATION
  Report Type: Spontaneous
  Country: BR (occurrence: BR)
  Receive Date: 20190708
  Receipt Date: 20190711
  Transmission Date: 20191004
  Serious: Yes (Other)
  Sender: FDA-Public Use
  Company Number: BR-SA-2019SA179355

PATIENT
  Age: 56 Year
  Sex: Female
  Weight: 71 kg

DRUGS (3)
  1. ABLOK [Concomitant]
     Active Substance: ATENOLOL
     Indication: ARRHYTHMIA
     Dosage: 2 DF, QD
     Route: 048
  2. ARTROLIVE [Concomitant]
     Active Substance: CHONDROITIN SULFATE (BOVINE)\GLUCOSAMINE SULFATE
     Dosage: 1 DF, QD
     Route: 048
  3. ALLEGRA-D [Suspect]
     Active Substance: FEXOFENADINE\PSEUDOEPHEDRINE
     Indication: EYE ALLERGY
     Dosage: 2 DF, QD
     Route: 065

REACTIONS (4)
  - Eye allergy [Unknown]
  - Conjunctivitis bacterial [Unknown]
  - Product residue present [Unknown]
  - Condition aggravated [Unknown]

NARRATIVE: CASE EVENT DATE: 20190624
